FAERS Safety Report 11994879 (Version 1)
Quarter: 2016Q1

REPORT INFORMATION
  Report Type: Spontaneous
  Country: BE (occurrence: BE)
  Receive Date: 20160203
  Receipt Date: 20160203
  Transmission Date: 20160526
  Serious: Yes (Death, Hospitalization)
  Sender: FDA-Public Use
  Company Number: BE-B.I. PHARMACEUTICALS,INC./RIDGEFIELD-2016-BI-06322BL

PATIENT
  Age: 82 Year
  Sex: Female
  Weight: 59 kg

DRUGS (3)
  1. IBUPROFEN. [Suspect]
     Active Substance: IBUPROFEN
     Indication: INFLAMMATION
     Route: 065
  2. PRADAXA [Suspect]
     Active Substance: DABIGATRAN ETEXILATE MESYLATE
     Indication: ATRIAL FIBRILLATION
     Dosage: 220 MG
     Route: 065
  3. DIGOXINE [Suspect]
     Active Substance: DIGOXIN
     Indication: PRODUCT USED FOR UNKNOWN INDICATION
     Route: 065

REACTIONS (9)
  - Fall [Unknown]
  - Acidosis [Unknown]
  - Pulmonary alveolar haemorrhage [Unknown]
  - Cardiorenal syndrome [Unknown]
  - Septic shock [Fatal]
  - Bradycardia [Unknown]
  - Toxicity to various agents [Unknown]
  - Hypotension [Unknown]
  - Acute kidney injury [Unknown]

NARRATIVE: CASE EVENT DATE: 201202
